FAERS Safety Report 9241597 (Version 2)
Quarter: 2013Q3

REPORT INFORMATION
  Report Type: Report from Study
  Country: DE (occurrence: DE)
  Receive Date: 20130419
  Receipt Date: 20130923
  Transmission Date: 20140515
  Serious: Yes (Death, Life-Threatening, Hospitalization, Other)
  Sender: FDA-Public Use
  Company Number: DE-CELGENEUS-062-21880-13041232

PATIENT
  Age: 74 Year
  Sex: Female

DRUGS (4)
  1. REVLIMID [Suspect]
     Indication: HODGKIN^S DISEASE
     Route: 048
     Dates: start: 20120731, end: 20120816
  2. ADRIAMYCIN [Suspect]
     Indication: HODGKIN^S DISEASE
     Route: 065
     Dates: start: 20120731, end: 20120827
  3. DACARBAZINE [Suspect]
     Indication: HODGKIN^S DISEASE
     Route: 065
     Dates: start: 20120731, end: 20120827
  4. VINBLASTIN [Suspect]
     Indication: HODGKIN^S DISEASE
     Route: 065
     Dates: start: 20120731, end: 20120827

REACTIONS (1)
  - Acute myeloid leukaemia [Fatal]
